FAERS Safety Report 19889767 (Version 18)
Quarter: 2022Q1

REPORT INFORMATION
  Report Type: Report from Study
  Country: CN (occurrence: None)
  Receive Date: 20210927
  Receipt Date: 20220326
  Transmission Date: 20220423
  Serious: Yes (Life-Threatening, Hospitalization)
  Sender: FDA-Public Use
  Company Number: CN-ROCHE-2919425

PATIENT
  Age: 60 Year
  Sex: Female
  Weight: 66 kg

DRUGS (37)
  1. ATEZOLIZUMAB [Suspect]
     Active Substance: ATEZOLIZUMAB
     Indication: Non-small cell lung cancer stage IV
     Dosage: MOST RECENT DOSE (1200 MG) OF STUDY DRUG PRIOR TO AE 08/SEP/2021
     Route: 041
     Dates: start: 20210908
  2. CARBOPLATIN [Suspect]
     Active Substance: CARBOPLATIN
     Indication: Non-small cell lung cancer stage IV
     Dosage: SAME DAY MOST RECENT DOSE ON 08/SEP/2021?ON 30-SEP-2021, 360 MG MOST RECENT DOSE PRIOR TO AE/SAE (AN
     Route: 042
     Dates: start: 20210908
  3. PEMETREXED [Suspect]
     Active Substance: PEMETREXED
     Indication: Non-small cell lung cancer stage IV
     Dosage: DOSE LAST STUDY DRUG ADMIN PRIOR AE AND SAE: 800 MG?START DATE OF MOST RECENT DOSE OF STUDY DRUG PRI
     Route: 042
     Dates: start: 20210908
  4. BEVACIZUMAB [Suspect]
     Active Substance: BEVACIZUMAB
     Indication: Non-small cell lung cancer stage IV
     Dosage: SAME DAY MOST RECENT DOSE ON 08/SEP/2021?ON 30-SEP-2021, 1050 MG MOST RECENT DOSE PRIOR TO AE/SAE (A
     Route: 042
     Dates: start: 20210908
  5. RABEPRAZOLE SODIUM [Concomitant]
     Active Substance: RABEPRAZOLE SODIUM
     Dates: start: 20210907, end: 20210910
  6. RABEPRAZOLE SODIUM [Concomitant]
     Active Substance: RABEPRAZOLE SODIUM
     Dates: start: 20211209, end: 20211210
  7. RABEPRAZOLE SODIUM [Concomitant]
     Active Substance: RABEPRAZOLE SODIUM
     Dates: start: 20211119, end: 20211120
  8. RABEPRAZOLE SODIUM [Concomitant]
     Active Substance: RABEPRAZOLE SODIUM
     Dates: start: 20220208, end: 20220214
  9. METHIONINE AND VITAMIN B1 [Concomitant]
     Dates: start: 20210907, end: 20210910
  10. METHIONINE AND VITAMIN B1 [Concomitant]
     Dates: start: 20211209, end: 20211210
  11. METHIONINE AND VITAMIN B1 [Concomitant]
     Dates: start: 20211119, end: 20211120
  12. TROPISETRON HYDROCHLORIDE [Concomitant]
     Active Substance: TROPISETRON HYDROCHLORIDE
     Dates: start: 20210908, end: 20210909
  13. TROPISETRON HYDROCHLORIDE [Concomitant]
     Active Substance: TROPISETRON HYDROCHLORIDE
     Dates: start: 20211119, end: 20211120
  14. PROMETHAZINE [Concomitant]
     Active Substance: PROMETHAZINE HYDROCHLORIDE
     Dates: start: 20210908, end: 20210908
  15. FOSAPREPITANT DIMEGLUMINE [Concomitant]
     Active Substance: FOSAPREPITANT DIMEGLUMINE
     Dates: start: 20210908, end: 20210908
  16. DEXAMETHASONE [Concomitant]
     Active Substance: DEXAMETHASONE
     Route: 048
     Dates: start: 20210907, end: 20210909
  17. DEXAMETHASONE [Concomitant]
     Active Substance: DEXAMETHASONE
     Route: 048
     Dates: start: 20211208, end: 20211210
  18. DEXAMETHASONE [Concomitant]
     Active Substance: DEXAMETHASONE
     Route: 048
     Dates: start: 20211118, end: 20211120
  19. TORSEMIDE [Concomitant]
     Active Substance: TORSEMIDE
     Route: 065
     Dates: start: 20210908, end: 20210909
  20. IBANDRONATE SODIUM [Concomitant]
     Active Substance: IBANDRONATE SODIUM
     Dates: start: 20210910, end: 20210910
  21. IBANDRONATE SODIUM [Concomitant]
     Active Substance: IBANDRONATE SODIUM
     Dates: start: 20211210, end: 20211210
  22. IBANDRONATE SODIUM [Concomitant]
     Active Substance: IBANDRONATE SODIUM
     Dates: start: 20211120, end: 20211120
  23. MORPHINE HYDROCHLORIDE [Concomitant]
     Active Substance: MORPHINE HYDROCHLORIDE
     Dates: start: 20210907, end: 20210907
  24. MORPHINE HYDROCHLORIDE [Concomitant]
     Active Substance: MORPHINE HYDROCHLORIDE
     Dates: start: 20210908, end: 20210908
  25. MORPHINE HYDROCHLORIDE [Concomitant]
     Active Substance: MORPHINE HYDROCHLORIDE
     Dates: start: 20210910, end: 20210910
  26. JIN YOU LI [Concomitant]
     Indication: White blood cell count increased
     Dates: start: 20210910, end: 20210910
  27. OXYCODONE HYDROCHLORIDE [Concomitant]
     Active Substance: OXYCODONE HYDROCHLORIDE
     Dates: start: 202012
  28. ONDANSETRON HYDROCHLORIDE [Concomitant]
     Active Substance: ONDANSETRON HYDROCHLORIDE
     Dates: start: 20210910, end: 20210916
  29. RUI BAI [Concomitant]
     Dates: start: 20210915, end: 20210915
  30. PEGYLATED RECOMBINANT HUMAN GRANULOCYTE COLONY STIMULATING FACTOR [Concomitant]
     Indication: White blood cell count increased
     Dates: start: 20210910, end: 20210910
  31. VITAMIN B12 [Concomitant]
     Active Substance: CYANOCOBALAMIN
     Dates: start: 20211208, end: 20211208
  32. METHYLPREDNISOLONE SODIUM SUCCINATE [Concomitant]
     Active Substance: METHYLPREDNISOLONE SODIUM SUCCINATE
     Route: 042
     Dates: start: 20220208, end: 20220208
  33. METHYLPREDNISOLONE SODIUM SUCCINATE [Concomitant]
     Active Substance: METHYLPREDNISOLONE SODIUM SUCCINATE
     Route: 042
     Dates: start: 20220209, end: 20220210
  34. METHYLPREDNISOLONE SODIUM SUCCINATE [Concomitant]
     Active Substance: METHYLPREDNISOLONE SODIUM SUCCINATE
     Route: 042
     Dates: start: 20220211, end: 20220213
  35. METHYLPREDNISOLONE SODIUM SUCCINATE [Concomitant]
     Active Substance: METHYLPREDNISOLONE SODIUM SUCCINATE
     Route: 042
     Dates: start: 20220214, end: 20220214
  36. MEDROXYPROGESTERONE ACETATE [Concomitant]
     Active Substance: MEDROXYPROGESTERONE ACETATE
     Dates: start: 20211209, end: 202112
  37. PREDNISONE ACETATE [Concomitant]
     Active Substance: PREDNISONE ACETATE
     Route: 048
     Dates: start: 20220215

REACTIONS (4)
  - Myelosuppression [Recovered/Resolved]
  - Hydronephrosis [Recovering/Resolving]
  - Anaemia [Not Recovered/Not Resolved]
  - Renal failure [Not Recovered/Not Resolved]

NARRATIVE: CASE EVENT DATE: 20210917
